FAERS Safety Report 5525634-2 (Version None)
Quarter: 2007Q4

REPORT INFORMATION
  Report Type: 
  Country: None (occurrence: None)
  Receive Date: 20071126
  Receipt Date: 20071112
  Transmission Date: 20080405
  Serious: Yes (Other)
  Sender: FDA-Public Use
  Company Number: IL-AMGEN-US253229

PATIENT
  Age: 11 Year
  Sex: Male

DRUGS (3)
  1. ENBREL [Suspect]
     Indication: JUVENILE ARTHRITIS
     Route: 065
  2. METHOTREXATE [Suspect]
  3. NSAID'S [Concomitant]
     Route: 065

REACTIONS (4)
  - CONDITION AGGRAVATED [None]
  - HEPATIC ENZYME ABNORMAL [None]
  - SARCOIDOSIS [None]
  - UVEITIS [None]
